FAERS Safety Report 19010112 (Version 1)
Quarter: 2021Q1

REPORT INFORMATION
  Report Type: Spontaneous
  Country: ES (occurrence: ES)
  Receive Date: 20210316
  Receipt Date: 20210316
  Transmission Date: 20210420
  Serious: Yes (Death, Other)
  Sender: FDA-Public Use
  Company Number: ES-AMGEN-ESPSP2021039806

PATIENT

DRUGS (4)
  1. CYCLOPHOSPHAMIDE. [Concomitant]
     Active Substance: CYCLOPHOSPHAMIDE
     Indication: PLASMA CELL MYELOMA
     Dosage: UNK
  2. DEXAMETHASONE. [Concomitant]
     Active Substance: DEXAMETHASONE
     Indication: PLASMA CELL MYELOMA
     Dosage: 20 MILLIGRAM
     Route: 048
  3. CARFILZOMIB [Suspect]
     Active Substance: CARFILZOMIB
     Indication: PLASMA CELL MYELOMA
     Dosage: 70 MILLIGRAM/SQ. METER, DAYS 1, 8 AND 15
     Route: 042
  4. CARFILZOMIB [Suspect]
     Active Substance: CARFILZOMIB
     Dosage: PLUS/MINUS AT A DOSE OF 300 MG/M2  IV ON DAYS 1, 8 AND 15 OF EACH 28 DAYS?CYCLE
     Route: 042

REACTIONS (10)
  - Hypertension [Unknown]
  - Neutropenia [Unknown]
  - Death [Fatal]
  - Off label use [Unknown]
  - Atrial fibrillation [Unknown]
  - Cardiac failure [Unknown]
  - Thrombocytopenia [Unknown]
  - Therapeutic product effect incomplete [Unknown]
  - Infection [Unknown]
  - Myocardial infarction [Unknown]
